FAERS Safety Report 9055353 (Version 1)
Quarter: 2013Q1

REPORT INFORMATION
  Report Type: Spontaneous
  Country: PL (occurrence: PL)
  Receive Date: 20130206
  Receipt Date: 20130206
  Transmission Date: 20140127
  Serious: Yes (Death)
  Sender: FDA-Public Use
  Company Number: PL-BAXTER-2013BAX003952

PATIENT
  Age: 73 Year
  Sex: Female

DRUGS (5)
  1. DIANEAL PD-1 WITH DEXTROSE [Suspect]
     Indication: PERITONEAL DIALYSIS
     Route: 033
  2. DIANEAL PD1 [Suspect]
     Indication: PERITONEAL DIALYSIS
     Route: 033
  3. DIANEAL PD4 (GLUKOZA 1,36%) ZESTAW DO DIALIZY OTRZEWNOWEJ [Suspect]
     Indication: PERITONEAL DIALYSIS
     Route: 033
  4. DIANEAL PD4 (GLUKOZA 1,36%) ZESTAW DO DIALIZY OTRZEWNOWEJ [Suspect]
     Indication: PERITONEAL DIALYSIS
  5. DIANEAL PD4 GLUCOSE 2,27 % W/V [Suspect]
     Indication: PERITONEAL DIALYSIS
     Route: 033

REACTIONS (4)
  - Asthenia [Fatal]
  - Respiratory failure [Fatal]
  - Cardiovascular insufficiency [Fatal]
  - Diabetic complication [Fatal]
